FAERS Safety Report 11703331 (Version 2)
Quarter: 2015Q4

REPORT INFORMATION
  Report Type: Spontaneous
  Country: DE (occurrence: DE)
  Receive Date: 20151105
  Receipt Date: 20151207
  Transmission Date: 20160304
  Serious: Yes (Other)
  Sender: FDA-Public Use
  Company Number: DE-ABBVIE-15P-062-1443649-00

PATIENT
  Age: 63 Year
  Sex: Female
  Weight: 60 kg

DRUGS (8)
  1. KLACID [Interacting]
     Active Substance: CLARITHROMYCIN
     Indication: PNEUMONIA CHLAMYDIAL
     Dosage: 500MG; 250MG IN THE MORNING AND 250MG IN THE EVENING
     Route: 048
     Dates: start: 20150711, end: 20150712
  2. PREDNISOLON [Suspect]
     Active Substance: PREDNISOLONE
     Indication: BREAST CANCER
     Route: 048
  3. KLACID [Interacting]
     Active Substance: CLARITHROMYCIN
     Indication: LUNG INFILTRATION
     Dosage: 500MG; 250MG IN THE MORNING AND 250MG IN THE EVENING
     Route: 048
     Dates: start: 20150715, end: 20150727
  4. TOREM [Concomitant]
     Active Substance: TORSEMIDE
     Indication: OEDEMA
     Dosage: 10-20 MG
     Dates: start: 201509
  5. TAMOXIFEN [Interacting]
     Active Substance: TAMOXIFEN
     Indication: PROPHYLAXIS
     Route: 065
  6. KLACID [Interacting]
     Active Substance: CLARITHROMYCIN
     Route: 065
  7. TAMOXIFEN [Interacting]
     Active Substance: TAMOXIFEN
     Indication: BREAST CANCER
     Dosage: 20MG DAILY, DOSING 0-0-1
     Route: 048
     Dates: start: 20150508
  8. PANTOPRAZOL [Concomitant]
     Active Substance: PANTOPRAZOLE SODIUM
     Indication: HYPERCHLORHYDRIA
     Dosage: 20-40 MG
     Route: 048

REACTIONS (17)
  - Coordination abnormal [Recovering/Resolving]
  - Asthenia [Not Recovered/Not Resolved]
  - Drug interaction [Unknown]
  - Gait disturbance [Recovering/Resolving]
  - Dysgeusia [Not Recovered/Not Resolved]
  - Diarrhoea [Recovered/Resolved]
  - Anxiety [Recovering/Resolving]
  - Pseudomembranous colitis [Recovered/Resolved]
  - Nervousness [Recovering/Resolving]
  - Nausea [Recovered/Resolved]
  - Fatigue [Recovering/Resolving]
  - Mental disorder [Recovering/Resolving]
  - Somnolence [Recovering/Resolving]
  - Depersonalisation [Recovering/Resolving]
  - Disorientation [Recovering/Resolving]
  - Tremor [Recovering/Resolving]
  - Activities of daily living impaired [Unknown]

NARRATIVE: CASE EVENT DATE: 201507
